FAERS Safety Report 6083817-X (Version None)
Quarter: 2009Q1

REPORT INFORMATION
  Report Type: 
  Country: None (occurrence: None)
  Receive Date: 20090204
  Receipt Date: 20071121
  Transmission Date: 20090719
  Serious: No
  Sender: FDA-Public Use
  Company Number: 268669

PATIENT
  Age: 50 Year
  Sex: Female

DRUGS (3)
  1. NOVOLOG [Suspect]
     Indication: DIABETES MELLITUS
     Dosage: SUBCUTANEOUS
     Route: 058
     Dates: start: 19990101
  2. NOVOLOG [Suspect]
  3. PREDNISONE TAB [Concomitant]

REACTIONS (1)
  - HYPERSENSITIVITY [None]
